FAERS Safety Report 9026636 (Version 1)
Quarter: 2013Q1

REPORT INFORMATION
  Report Type: Spontaneous
  Country: US (occurrence: None)
  Receive Date: 20130114
  Receipt Date: 20130114
  Transmission Date: 20140127
  Serious: No
  Sender: FDA-Public Use
  Company Number: None

PATIENT
  Age: 80 Year
  Sex: Female
  Weight: 62.6 kg

DRUGS (1)
  1. GENTAMICIN SULFATE [Suspect]
     Indication: URINARY TRACT INFECTION
     Dosage: 8 SHOTS -2 A DAY FOR 4 DAYS

REACTIONS (9)
  - Arthralgia [None]
  - Dizziness [None]
  - Pruritus [None]
  - Somnolence [None]
  - Nausea [None]
  - Thirst [None]
  - Hypoaesthesia [None]
  - Paraesthesia [None]
  - Muscular weakness [None]
